FAERS Safety Report 15082113 (Version 1)
Quarter: 2018Q2

REPORT INFORMATION
  Report Type: Spontaneous
  Country: JP (occurrence: JP)
  Receive Date: 20180628
  Receipt Date: 20180628
  Transmission Date: 20180711
  Serious: Yes (Other)
  Sender: FDA-Public Use
  Company Number: JP-ELI_LILLY_AND_COMPANY-JP201806009581

PATIENT
  Age: 66 Year
  Sex: Male

DRUGS (9)
  1. NORVASC [Concomitant]
     Active Substance: AMLODIPINE BESYLATE
  2. NAUZELIN [Concomitant]
     Active Substance: DOMPERIDONE
  3. SYMPROIC [Concomitant]
     Active Substance: NALDEMEDINE
  4. TAKECAB [Concomitant]
     Active Substance: VONOPRAZAN FUMURATE
  5. OXYCONTIN [Concomitant]
     Active Substance: OXYCODONE HYDROCHLORIDE
  6. GASMOTIN [Concomitant]
     Active Substance: MOSAPRIDE CITRATE
  7. THYRADIN [Concomitant]
     Active Substance: LEVOTHYROXINE
  8. CYRAMZA [Suspect]
     Active Substance: RAMUCIRUMAB
     Indication: PRODUCT USED FOR UNKNOWN INDICATION
     Route: 041
  9. FENTOS [Concomitant]
     Active Substance: FENTANYL

REACTIONS (1)
  - Nephrotic syndrome [Unknown]
